FAERS Safety Report 7422817-1 (Version None)
Quarter: 2011Q2

REPORT INFORMATION
  Report Type: 
  Country: None (occurrence: None)
  Receive Date: 20110419
  Receipt Date: 20100116
  Transmission Date: 20111010
  Serious: Yes (Death, Hospitalization, Other)
  Sender: FDA-Public Use
  Company Number: US-BAYER-201011171NA

PATIENT
  Age: 75 Year
  Sex: Female
  Weight: 104 kg

DRUGS (28)
  1. TRASYLOL [Suspect]
     Indication: CORONARY ARTERY BYPASS
     Dates: start: 20060608
  2. TRASYLOL [Suspect]
     Indication: AORTIC ANEURYSM REPAIR
  3. TRASYLOL [Suspect]
     Indication: AORTIC VALVE REPLACEMENT
  4. EPHEDRINE [Concomitant]
     Dosage: UNK
     Route: 042
     Dates: start: 20060608
  5. MILRINONE [Concomitant]
     Dosage: UNK
     Route: 042
     Dates: start: 20060608
  6. TRASYLOL [Suspect]
  7. OXYCODONE [Concomitant]
     Indication: ANALGESIC THERAPY
     Dosage: UNK
     Dates: start: 20060201, end: 20060608
  8. LASIX [Concomitant]
     Indication: FLUID RETENTION
     Dosage: UNK
     Dates: start: 20060215, end: 20060301
  9. POLYMYCIN B SULFATE [Concomitant]
     Dosage: 500000 U, UNK
     Route: 042
     Dates: start: 20060608
  10. PLASMA [Concomitant]
     Dosage: SIX UNITS
  11. ARIMIDEX [Concomitant]
     Indication: BREAST CANCER
     Dosage: UNK
     Dates: start: 20040401, end: 20060608
  12. MECLIZINE HCL [Concomitant]
     Indication: ANTIALLERGIC THERAPY
     Dosage: UNK
     Dates: start: 20060201, end: 20060608
  13. VANCOMYCIN [Concomitant]
     Dosage: 1.5 GRAMS
     Route: 042
     Dates: start: 20060608
  14. VECURONIUM BROMIDE [Concomitant]
     Dosage: UNK
     Route: 042
     Dates: start: 20060608
  15. PROTAMINE SULFATE [Concomitant]
     Dosage: UNK
     Route: 042
     Dates: start: 20060608
  16. PLATELETS [Concomitant]
     Dosage: ONE UNIT
  17. LIPITOR [Concomitant]
     Indication: BLOOD CHOLESTEROL INCREASED
     Dosage: UNK
     Dates: start: 20060101, end: 20060608
  18. LEVOXYL [Concomitant]
     Indication: HYPOTHYROIDISM
     Dosage: UNK
     Dates: start: 20060401, end: 20060608
  19. PHENYLEPHRINE HCL [Concomitant]
     Dosage: UNK
     Route: 042
     Dates: start: 20060608
  20. HEPARIN [Concomitant]
     Dosage: 12,000 UNITS /4000 UNITS
     Route: 042
     Dates: start: 20060608
  21. ALBUMIN (HUMAN) [Concomitant]
     Dosage: UNK
     Route: 042
     Dates: start: 20060608
  22. AMICAR [Concomitant]
     Dosage: 10 MG / 6 MG
     Route: 042
     Dates: start: 20060608
  23. INSULIN [Concomitant]
     Dosage: UNK
     Route: 042
     Dates: start: 20060608
  24. ACTONEL [Concomitant]
     Indication: OSTEOPOROSIS
     Dosage: UNK
     Dates: start: 20060501, end: 20060608
  25. ACETYLSALICYLIC ACID SRT [Concomitant]
     Dosage: UNK
     Dates: start: 20060501, end: 20060608
  26. VERSED [Concomitant]
     Dosage: 2 MG, UNK
     Route: 042
     Dates: start: 20060608
  27. MORPHINE [Concomitant]
     Dosage: UNK
     Route: 042
     Dates: start: 20060608
  28. NITROGLYCERIN [Concomitant]
     Dosage: UNK
     Route: 042
     Dates: start: 20060608

REACTIONS (15)
  - ORGAN FAILURE [None]
  - FEAR [None]
  - PAIN [None]
  - DEATH [None]
  - ANHEDONIA [None]
  - ANXIETY [None]
  - RENAL FAILURE [None]
  - UNEVALUABLE EVENT [None]
  - INJURY [None]
  - CARDIAC DISORDER [None]
  - RENAL IMPAIRMENT [None]
  - EMOTIONAL DISTRESS [None]
  - CEREBROVASCULAR ACCIDENT [None]
  - DEPRESSION [None]
  - RENAL INJURY [None]
